FAERS Safety Report 5723976-9 (Version None)
Quarter: 2008Q2

REPORT INFORMATION
  Report Type: 
  Country: None (occurrence: None)
  Receive Date: 20080428
  Receipt Date: 20080225
  Transmission Date: 20081010
  Serious: Yes (Other)
  Sender: FDA-Public Use
  Company Number: 2008009886

PATIENT
  Sex: Female
  Weight: 68 kg

DRUGS (7)
  1. BENADRYL [Suspect]
     Indication: SLEEP DISORDER
     Dates: start: 20070818, end: 20070818
  2. LIPITOR [Suspect]
  3. LOPRESSOR [Suspect]
     Dosage: 50 MG BID (25 MG, 2 IN 1 D)
  4. LASIX [Suspect]
     Dosage: 20 MG
  5. VYTORIN [Suspect]
  6. POTASSIUM (POTASSIIUM) [Concomitant]
  7. COENZYME Q10 [Concomitant]

REACTIONS (13)
  - BODY HEIGHT DECREASED [None]
  - CARPAL TUNNEL SYNDROME [None]
  - DIZZINESS [None]
  - DYSPNOEA [None]
  - FEELING ABNORMAL [None]
  - HAEMATOCRIT DECREASED [None]
  - HAEMATOMA [None]
  - HAEMOGLOBIN DECREASED [None]
  - ROAD TRAFFIC ACCIDENT [None]
  - STOMACH DISCOMFORT [None]
  - TACHYCARDIA [None]
  - THROMBOCYTOPENIA [None]
  - TINNITUS [None]
